FAERS Safety Report 17702177 (Version 1)
Quarter: 2020Q2

REPORT INFORMATION
  Report Type: Spontaneous
  Country: US (occurrence: US)
  Receive Date: 20200423
  Receipt Date: 20200423
  Transmission Date: 20200714
  Serious: Yes (Other)
  Sender: FDA-Public Use
  Company Number: US-ABBVIE-20K-163-3321778-00

PATIENT
  Sex: Female

DRUGS (2)
  1. ORILISSA [Suspect]
     Active Substance: ELAGOLIX SODIUM
     Indication: ENDOMETRIOSIS
     Route: 048
  2. DEPO [Concomitant]
     Active Substance: UNSPECIFIED INGREDIENT
     Indication: PRODUCT USED FOR UNKNOWN INDICATION

REACTIONS (9)
  - Suicidal ideation [Unknown]
  - Bone pain [Unknown]
  - Adverse drug reaction [Unknown]
  - Dementia [Unknown]
  - Crying [Unknown]
  - Pain [Unknown]
  - Headache [Unknown]
  - Vision blurred [Unknown]
  - Premenstrual syndrome [Unknown]
